FAERS Safety Report 8960288 (Version 1)
Quarter: 2012Q4

REPORT INFORMATION
  Report Type: 
  Country: US (occurrence: US)
  Receive Date: 20121211
  Receipt Date: 20121211
  Transmission Date: 20130627
  Serious: Yes (Hospitalization)
  Sender: FDA-Public Use
  Company Number: PHHY2012US113695

PATIENT
  Age: 46 Year
  Sex: Male

DRUGS (1)
  1. SULFAMETHOXAZOLE+TRIMETHOPRIM [Suspect]
     Indication: STAPHYLOCOCCAL INFECTION

REACTIONS (9)
  - Splenomegaly [Unknown]
  - Pancytopenia [Recovering/Resolving]
  - Pyrexia [Recovering/Resolving]
  - Rash [Recovering/Resolving]
  - Petechiae [Unknown]
  - Thrombocytopenia [Recovering/Resolving]
  - Contusion [Unknown]
  - Aspartate aminotransferase increased [Unknown]
  - Alanine aminotransferase increased [Unknown]
